FAERS Safety Report 4365553-0 (Version None)
Quarter: 2004Q2

REPORT INFORMATION
  Report Type: 
  Country: None (occurrence: None)
  Receive Date: 20040526
  Receipt Date: 20040514
  Transmission Date: 20050107
  Serious: Yes (Disabling, Other)
  Sender: FDA-Public Use
  Company Number: CH-BRISTOL-MYERS SQUIBB COMPANY-12588216

PATIENT
  Age: 47 Year
  Sex: Female
  Weight: 51 kg

DRUGS (12)
  1. MAXIPIME [Suspect]
     Indication: AGRANULOCYTOSIS
     Dosage: 2 GRAMS 2 X PER DAY 30-APR-2004; 4 GRAM DAILY 04-MAY-2004, STOPPED ON 05-MAY-2004
     Route: 042
     Dates: start: 20040430, end: 20040505
  2. MAXIPIME [Suspect]
     Indication: PYREXIA
     Dosage: 2 GRAMS 2 X PER DAY 30-APR-2004; 4 GRAM DAILY 04-MAY-2004, STOPPED ON 05-MAY-2004
     Route: 042
     Dates: start: 20040430, end: 20040505
  3. GRANOCYTE [Concomitant]
     Indication: AGRANULOCYTOSIS
     Route: 042
     Dates: start: 20040501
  4. LASIX [Concomitant]
     Route: 042
     Dates: start: 20040504
  5. PRIMPERAN INJ [Concomitant]
     Indication: NAUSEA
     Route: 042
     Dates: start: 20040420
  6. RIVOTRIL [Concomitant]
     Indication: CONVULSION
     Route: 042
     Dates: start: 20040428
  7. AMINOMIX [Concomitant]
     Route: 051
     Dates: start: 20040428
  8. OLIGO-ELEMENTS [Concomitant]
     Route: 042
     Dates: start: 20040423
  9. FOLVITE [Concomitant]
     Route: 048
     Dates: start: 20040422
  10. BENERVA [Concomitant]
     Route: 048
     Dates: start: 20040414
  11. GUAIFENESIN + CODEINE [Concomitant]
     Indication: COUGH
     Dosage: 133 MG OF GUAIFENESIN + 13.3 MG OF CODEINE
     Route: 048
     Dates: start: 20040417
  12. DAFALGAN [Concomitant]
     Indication: PYREXIA
     Route: 048
     Dates: start: 20040414

REACTIONS (9)
  - AGITATION [None]
  - CONFUSIONAL STATE [None]
  - DISORIENTATION [None]
  - ENCEPHALOPATHY [None]
  - LUNG INFILTRATION [None]
  - MEDICATION ERROR [None]
  - OVERDOSE [None]
  - SUBDURAL HAEMATOMA [None]
  - TREMOR [None]
